FAERS Safety Report 13365857 (Version 2)
Quarter: 2017Q2

REPORT INFORMATION
  Report Type: Report from Study
  Country: US (occurrence: US)
  Receive Date: 20170323
  Receipt Date: 20170403
  Transmission Date: 20170830
  Serious: Yes (Other)
  Sender: FDA-Public Use
  Company Number: US-009507513-1703USA009251

PATIENT
  Age: 74 Year
  Sex: Male

DRUGS (6)
  1. METFORMIN [Concomitant]
     Active Substance: METFORMIN HYDROCHLORIDE
  2. ZOFRAN [Concomitant]
     Active Substance: ONDANSETRON HYDROCHLORIDE
  3. KEYTRUDA [Suspect]
     Active Substance: PEMBROLIZUMAB
     Indication: SMALL CELL LUNG CANCER METASTATIC
     Dosage: 200 MG, Q3W
     Route: 042
     Dates: start: 20160929, end: 20170221
  4. ZOCOR [Concomitant]
     Active Substance: SIMVASTATIN
     Route: 048
  5. COMPAZINE [Concomitant]
     Active Substance: PROCHLORPERAZINE MALEATE
  6. PANTOPRAZOLE [Concomitant]
     Active Substance: PANTOPRAZOLE

REACTIONS (2)
  - Malignant neoplasm progression [Not Recovered/Not Resolved]
  - Product use in unapproved indication [Unknown]

NARRATIVE: CASE EVENT DATE: 20170314
